FAERS Safety Report 14044667 (Version 1)
Quarter: 2017Q4

REPORT INFORMATION
  Report Type: Spontaneous
  Country: US (occurrence: US)
  Receive Date: 20171005
  Receipt Date: 20171005
  Transmission Date: 20180321
  Serious: No
  Sender: FDA-Public Use
  Company Number: None

PATIENT
  Age: 29 Year
  Sex: Female
  Weight: 47.25 kg

DRUGS (6)
  1. MUCINEX DM [Suspect]
     Active Substance: DEXTROMETHORPHAN HYDROBROMIDE\GUAIFENESIN
     Indication: SINUSITIS
     Dosage: QUANTITY 1 TABLET(S)?REGULAR MG/ML - MILLIGRAMS
     Route: 048
     Dates: start: 20171003, end: 20171004
  2. EMERGEN C [Concomitant]
     Active Substance: MINERALS\VITAMINS
  3. ZINC. [Concomitant]
     Active Substance: ZINC
  4. MUCINEX DM [Suspect]
     Active Substance: DEXTROMETHORPHAN HYDROBROMIDE\GUAIFENESIN
     Indication: INFLUENZA
     Dosage: QUANTITY 1 TABLET(S)?REGULAR MG/ML - MILLIGRAMS
     Route: 048
     Dates: start: 20171003, end: 20171004
  5. ONGUARD SOFTGELS [Concomitant]
  6. IBUPROFEN. [Concomitant]
     Active Substance: IBUPROFEN

REACTIONS (11)
  - Palpitations [None]
  - Somnolence [None]
  - Paranoia [None]
  - Thinking abnormal [None]
  - Exposure during breast feeding [None]
  - Feeling abnormal [None]
  - Middle insomnia [None]
  - Anxiety [None]
  - Tinnitus [None]
  - Memory impairment [None]
  - Vertigo [None]

NARRATIVE: CASE EVENT DATE: 20171003
